FAERS Safety Report 22660801 (Version 1)
Quarter: 2023Q2

REPORT INFORMATION
  Report Type: Report from Study
  Country: US (occurrence: US)
  Receive Date: 20230630
  Receipt Date: 20230630
  Transmission Date: 20230721
  Serious: Yes (Other)
  Sender: FDA-Public Use
  Company Number: US-JAZZ PHARMACEUTICALS-2023-US-006740

PATIENT
  Age: 31 Year
  Sex: Female

DRUGS (3)
  1. EPIDIOLEX [Suspect]
     Active Substance: CANNABIDIOL
     Indication: Idiopathic generalised epilepsy
     Dosage: 6 MILLILITER, BID
     Route: 048
     Dates: start: 202302
  2. EPIDIOLEX [Suspect]
     Active Substance: CANNABIDIOL
     Dosage: 7 MILLILITER, BID
     Route: 048
     Dates: start: 202302
  3. EPIDIOLEX [Suspect]
     Active Substance: CANNABIDIOL
     Dosage: 5 MILLILITER
     Route: 048
     Dates: start: 202302

REACTIONS (5)
  - Facial bones fracture [Unknown]
  - Tooth fracture [Unknown]
  - Fall [Unknown]
  - Dizziness [Unknown]
  - Off label use [Unknown]

NARRATIVE: CASE EVENT DATE: 20230220
